FAERS Safety Report 14656824 (Version 2)
Quarter: 2018Q1

REPORT INFORMATION
  Report Type: Spontaneous
  Country: DK (occurrence: DK)
  Receive Date: 20180319
  Receipt Date: 20180328
  Transmission Date: 20180509
  Serious: Yes (Hospitalization, Disabling, Other)
  Sender: FDA-Public Use
  Company Number: DK-IMPAX LABORATORIES, INC-2018-IPXL-00840

PATIENT
  Age: 72 Year
  Sex: Female

DRUGS (2)
  1. METFORMIN HYDROCHLORIDE ER [Suspect]
     Active Substance: METFORMIN HYDROCHLORIDE
     Indication: TYPE 2 DIABETES MELLITUS
     Dosage: 500 MG, 2 /DAY
     Route: 065
  2. RAMIPRIL. [Concomitant]
     Active Substance: RAMIPRIL
     Indication: PRODUCT USED FOR UNKNOWN INDICATION
     Dosage: 10 MG, DAILY
     Route: 065

REACTIONS (10)
  - Anuria [Unknown]
  - Dehydration [Unknown]
  - Cerebral infarction [Unknown]
  - Coma [Unknown]
  - Paralysis [Unknown]
  - Gastroenteritis [Unknown]
  - Acute kidney injury [Unknown]
  - Disseminated intravascular coagulation [Unknown]
  - Lactic acidosis [Recovering/Resolving]
  - Cardiovascular disorder [Unknown]
